FAERS Safety Report 5718535-8 (Version None)
Quarter: 2008Q2

REPORT INFORMATION
  Report Type: 
  Country: None (occurrence: None)
  Receive Date: 20080425
  Receipt Date: 20080416
  Transmission Date: 20081010
  Serious: Yes (Hospitalization)
  Sender: FDA-Public Use
  Company Number: PHBS2008JP04195

PATIENT
  Age: 62 Year
  Sex: Female

DRUGS (5)
  1. METHYLPHENIDATE HCL [Suspect]
     Indication: MAJOR DEPRESSION
     Dosage: 10 MG, UNK
  2. PAROXETINE HCL [Concomitant]
     Dosage: 40 MG/DAY
  3. MILNACIPRAN [Concomitant]
     Indication: DEPRESSION
     Dosage: 100 MG, UNK
  4. AMOXAPINE [Concomitant]
     Indication: DEPRESSION
     Dosage: 225 MG, UNK
  5. SERTRALINE [Suspect]
     Dosage: 100 MG, UNK

REACTIONS (11)
  - BLOOD CREATINE PHOSPHOKINASE INCREASED [None]
  - BLOOD PRESSURE INCREASED [None]
  - DRUG INTERACTION [None]
  - HEART RATE INCREASED [None]
  - HYPERHIDROSIS [None]
  - HYPERREFLEXIA [None]
  - MUSCLE RIGIDITY [None]
  - MYDRIASIS [None]
  - PYREXIA [None]
  - SEROTONIN SYNDROME [None]
  - WHITE BLOOD CELL COUNT INCREASED [None]
